FAERS Safety Report 14478981 (Version 1)
Quarter: 2018Q1

REPORT INFORMATION
  Report Type: Spontaneous
  Country: GR (occurrence: GR)
  Receive Date: 20180202
  Receipt Date: 20180202
  Transmission Date: 20180509
  Serious: Yes (Life-Threatening, Hospitalization)
  Sender: FDA-Public Use
  Company Number: GR-CIPLA LTD.-2018GR03258

PATIENT

DRUGS (4)
  1. AMIODARONE [Suspect]
     Active Substance: AMIODARONE
     Indication: HYPERTENSION
     Dosage: 400 MG, UNK
     Route: 065
  2. INSULIN [Concomitant]
     Active Substance: INSULIN NOS
     Indication: TYPE 2 DIABETES MELLITUS
     Dosage: UNK
     Route: 058
  3. VALSARTAN. [Concomitant]
     Active Substance: VALSARTAN
     Indication: HYPERTENSION
     Dosage: 320 MG, UNK
     Route: 065
  4. AMLODIPINE [Suspect]
     Active Substance: AMLODIPINE BESYLATE
     Indication: HYPERTENSION
     Dosage: 10 MG, UNK
     Route: 065

REACTIONS (10)
  - Dyspnoea [Recovering/Resolving]
  - Acute kidney injury [Recovering/Resolving]
  - Cardiac dysfunction [Recovering/Resolving]
  - Toxicity to various agents [Unknown]
  - Hypotension [Recovered/Resolved]
  - Overdose [Unknown]
  - Pleural effusion [Recovering/Resolving]
  - Drug level increased [Unknown]
  - Syncope [Recovering/Resolving]
  - Shock [Recovering/Resolving]
